FAERS Safety Report 9264781 (Version 1)
Quarter: 2013Q2

REPORT INFORMATION
  Report Type: Spontaneous
  Country: US (occurrence: None)
  Receive Date: 20130429
  Receipt Date: 20130429
  Transmission Date: 20140414
  Serious: No
  Sender: FDA-Public Use
  Company Number: None

PATIENT
  Sex: 0

DRUGS (1)
  1. TRAMADOL [Suspect]
     Indication: PAIN
     Dosage: 100 MG Q6H PRN ORAL
     Route: 048
     Dates: start: 20130424, end: 20130424

REACTIONS (1)
  - Swollen tongue [None]
